FAERS Safety Report 4394118-X (Version None)
Quarter: 2004Q3

REPORT INFORMATION
  Report Type: 
  Country: None (occurrence: None)
  Receive Date: 20040705
  Receipt Date: 20040617
  Transmission Date: 20050211
  Serious: Yes (Other)
  Sender: FDA-Public Use
  Company Number: 601341

PATIENT
  Sex: Male

DRUGS (1)
  1. ADVATE [Suspect]
     Indication: COAGULATION FACTOR VIII LEVEL ABNORMAL

REACTIONS (1)
  - HAEMORRHAGE INTRACRANIAL [None]
